FAERS Safety Report 9664687 (Version 1)
Quarter: 2013Q4

REPORT INFORMATION
  Report Type: Spontaneous
  Country: FR (occurrence: FR)
  Receive Date: 20131101
  Receipt Date: 20131101
  Transmission Date: 20140711
  Serious: Yes (Hospitalization)
  Sender: FDA-Public Use
  Company Number: FR-EISAI INC-E3810-06746-SPO-FR

PATIENT
  Age: 67 Year
  Sex: 0

DRUGS (8)
  1. PARIET (RABEPRAZOLE) [Suspect]
     Route: 048
  2. VENLAFAXINE [Suspect]
     Indication: DEPRESSION
     Route: 048
     Dates: start: 20130901, end: 20130929
  3. LOXEN [Concomitant]
  4. METFORMIN [Concomitant]
  5. BETAHISTINE [Concomitant]
  6. DIFFU K [Concomitant]
  7. CELIPROLOL [Concomitant]
  8. DIAMICRON [Concomitant]

REACTIONS (1)
  - Hyponatraemia [Recovered/Resolved]
